FAERS Safety Report 7211458-7 (Version None)
Quarter: 2011Q1

REPORT INFORMATION
  Report Type: 
  Country: None (occurrence: None)
  Receive Date: 20110105
  Receipt Date: 20101230
  Transmission Date: 20110831
  Serious: Yes (Other)
  Sender: FDA-Public Use
  Company Number: US-B.I. PHARMACEUTICALS,INC./RIDGEFIELD-2010-BP-15378BP

PATIENT
  Age: 73 Year
  Sex: Female
  Weight: 75.7 kg

DRUGS (16)
  1. CELEBREX [Suspect]
     Indication: ARTHRITIS
     Dosage: 400 MG
     Route: 048
  2. CALCIUM [Concomitant]
  3. FOLIC ACID [Concomitant]
  4. DILTIAZEM [Concomitant]
     Indication: HYPERTENSION
  5. FLUOXETINE [Concomitant]
  6. VITAMIN D [Concomitant]
  7. FERROUS SULFATE TAB [Concomitant]
  8. SIMVASTATIN [Concomitant]
     Indication: HYPERTENSION
  9. ACETYLSALICYLIC ACID [Concomitant]
  10. TRAMADOL HCL [Concomitant]
     Indication: PAIN
  11. BENICAR [Concomitant]
     Indication: HYPERTENSION
  12. MIRTAZAPINE [Concomitant]
     Indication: SLEEP DISORDER
  13. MELOXICAM [Suspect]
  14. VITAMIN E [Concomitant]
  15. FISH OIL [Concomitant]
  16. VITAMIN B1 TAB [Concomitant]

REACTIONS (2)
  - BONE DENSITY ABNORMAL [None]
  - DIZZINESS [None]
